FAERS Safety Report 5357167-0 (Version None)
Quarter: 2007Q2

REPORT INFORMATION
  Report Type: 
  Country: None (occurrence: None)
  Receive Date: 20070614
  Receipt Date: 20070606
  Transmission Date: 20071010
  Serious: Yes (Other)
  Sender: FDA-Public Use
  Company Number: AU-AVENTIS-200715135GDDC

PATIENT
  Age: 59 Year
  Sex: Female

DRUGS (4)
  1. LANTUS [Suspect]
     Indication: DIABETES MELLITUS
     Route: 058
     Dates: start: 20061101
  2. AUTOPEN INSULIN INJECTION PEN [Suspect]
     Route: 058
  3. AVANDIA [Concomitant]
     Indication: DIABETES MELLITUS
     Route: 048
  4. DIABEX [Concomitant]
     Indication: DIABETES MELLITUS
     Route: 048

REACTIONS (2)
  - CATARACT [None]
  - WEIGHT INCREASED [None]
